FAERS Safety Report 5533308-7 (Version None)
Quarter: 2007Q4

REPORT INFORMATION
  Report Type: 
  Country: None (occurrence: None)
  Receive Date: 20071204
  Receipt Date: 20071129
  Transmission Date: 20080405
  Serious: Yes (Life-Threatening, Hospitalization, Other)
  Sender: FDA-Public Use
  Company Number: HQWYE789926JUN07

PATIENT
  Sex: Female
  Weight: 55 kg

DRUGS (5)
  1. MYLOTARG [Suspect]
     Indication: ACUTE MYELOID LEUKAEMIA RECURRENT
     Route: 041
     Dates: start: 20070619, end: 20070619
  2. BLOPRESS [Concomitant]
     Route: 048
     Dates: start: 20070611
  3. MEVALOTIN [Concomitant]
     Route: 048
     Dates: start: 20070611
  4. ROCEPHIN [Concomitant]
     Route: 041
     Dates: start: 20070616, end: 20070622
  5. AMLODIN [Concomitant]
     Route: 048
     Dates: start: 20070611

REACTIONS (4)
  - DISSEMINATED INTRAVASCULAR COAGULATION [None]
  - HAEMATEMESIS [None]
  - LIVER DISORDER [None]
  - MELAENA [None]
